FAERS Safety Report 6134852-4 (Version None)
Quarter: 2009Q1

REPORT INFORMATION
  Report Type: 
  Country: None (occurrence: None)
  Receive Date: 20090327
  Receipt Date: 20090317
  Transmission Date: 20090719
  Serious: No
  Sender: FDA-Public Use
  Company Number: CA-ELI_LILLY_AND_COMPANY-CA200903005095

PATIENT
  Age: 38 Year
  Sex: Male

DRUGS (3)
  1. CYMBALTA [Suspect]
     Indication: DEPRESSION
     Dosage: 60 MG, UNK
  2. WELLBUTRIN [Concomitant]
     Dosage: 300 MG, UNK
  3. ATIVAN [Concomitant]

REACTIONS (5)
  - DECREASED APPETITE [None]
  - LIBIDO DECREASED [None]
  - NERVOUSNESS [None]
  - SWELLING FACE [None]
  - YELLOW SKIN [None]
